FAERS Safety Report 16869407 (Version 1)
Quarter: 2019Q3

REPORT INFORMATION
  Report Type: Spontaneous
  Country: GB (occurrence: GB)
  Receive Date: 20190930
  Receipt Date: 20190930
  Transmission Date: 20191005
  Serious: Yes (Hospitalization, Other)
  Sender: FDA-Public Use
  Company Number: GB-BAXTER-2019BAX018974

PATIENT
  Sex: Female

DRUGS (1)
  1. ONDANSETRON 2MG/ML SOLUTION FOR INJECTION [Suspect]
     Active Substance: ONDANSETRON
     Indication: PROPHYLAXIS OF NAUSEA AND VOMITING
     Route: 042
     Dates: start: 20190829, end: 20190829

REACTIONS (3)
  - Dystonia [Recovered/Resolved]
  - Opisthotonus [Recovered/Resolved]
  - Oculogyric crisis [Recovered/Resolved]

NARRATIVE: CASE EVENT DATE: 20190829
